APPROVED DRUG PRODUCT: DACOGEN
Active Ingredient: DECITABINE
Strength: 50MG/VIAL **Federal Register determination that product was not discontinued or withdrawn for safety or effectiveness reasons**
Dosage Form/Route: INJECTABLE;INTRAVENOUS
Application: N021790 | Product #001
Applicant: OTSUKA PHARMACEUTICAL CO LTD
Approved: May 2, 2006 | RLD: Yes | RS: No | Type: DISCN